FAERS Safety Report 15599551 (Version 1)
Quarter: 2018Q4

REPORT INFORMATION
  Report Type: Spontaneous
  Country: US (occurrence: US)
  Receive Date: 20181108
  Receipt Date: 20181108
  Transmission Date: 20190205
  Serious: No
  Sender: FDA-Public Use
  Company Number: US-ELI_LILLY_AND_COMPANY-US201811002876

PATIENT
  Age: 22 Year
  Sex: Male

DRUGS (2)
  1. GALCANEZUMAB 120MG [Suspect]
     Active Substance: GALCANEZUMAB
     Indication: MIGRAINE
     Dosage: 240 MG, LOADING DOSE
     Route: 058
     Dates: start: 20181104
  2. LAMICTAL [Concomitant]
     Active Substance: LAMOTRIGINE
     Indication: MIGRAINE
     Dosage: UNK UNK, UNKNOWN
     Route: 058
     Dates: start: 20181104

REACTIONS (5)
  - Feeling abnormal [Recovered/Resolved with Sequelae]
  - Injection site pain [Unknown]
  - Injection site swelling [Unknown]
  - Vomiting [Recovered/Resolved]
  - Nausea [Not Recovered/Not Resolved]

NARRATIVE: CASE EVENT DATE: 20181105
